FAERS Safety Report 5591554-0 (Version None)
Quarter: 2008Q1

REPORT INFORMATION
  Report Type: 
  Country: None (occurrence: None)
  Receive Date: 20080115
  Receipt Date: 20080104
  Transmission Date: 20080703
  Serious: Yes (Death, Hospitalization)
  Sender: FDA-Public Use
  Company Number: US-JNJFOC-20080101974

PATIENT
  Age: 31 Year
  Sex: Female

DRUGS (15)
  1. ACETAMINOPHEN [Suspect]
     Route: 048
  2. ACETAMINOPHEN [Suspect]
     Indication: DRUG USE FOR UNKNOWN INDICATION
     Route: 048
  3. DIPHENHYDRAMINE HCL [Suspect]
     Indication: DRUG USE FOR UNKNOWN INDICATION
     Route: 048
  4. LAMOTRIGINE [Suspect]
     Indication: BIPOLAR DISORDER
     Route: 048
  5. LAMOTRIGINE [Suspect]
     Indication: DEPRESSION
     Route: 048
  6. PAROXETINE [Suspect]
     Indication: BIPOLAR DISORDER
     Route: 048
  7. PAROXETINE [Suspect]
     Indication: DEPRESSION
     Route: 048
  8. QUETIAPINE [Suspect]
     Indication: BIPOLAR DISORDER
     Route: 048
  9. QUETIAPINE [Suspect]
     Indication: DEPRESSION
     Route: 048
  10. FOLIC ACID [Concomitant]
  11. ETHANOL [Concomitant]
  12. CAFFEINE CITRATE [Concomitant]
  13. NICOTINE [Concomitant]
  14. DEXTROMETHORPHAN HYDROBROMIDE [Concomitant]
  15. PSEUDOEPHEDRINE HCL [Concomitant]

REACTIONS (7)
  - ATRIAL FIBRILLATION [None]
  - BRAIN OEDEMA [None]
  - COMPLETED SUICIDE [None]
  - DRUG TOXICITY [None]
  - PULMONARY OEDEMA [None]
  - STATUS EPILEPTICUS [None]
  - VENTRICULAR TACHYCARDIA [None]
